FAERS Safety Report 24969384 (Version 1)
Quarter: 2025Q1

REPORT INFORMATION
  Report Type: Spontaneous
  Country: US (occurrence: US)
  Receive Date: 20250214
  Receipt Date: 20250214
  Transmission Date: 20250409
  Serious: Yes (Life-Threatening)
  Sender: SYMOGEN
  Company Number: US-PARTNER THERAPEUTICS-2025PTX00002

PATIENT
  Sex: Male
  Weight: 86.168 kg

DRUGS (4)
  1. LEUKINE [Suspect]
     Active Substance: SARGRAMOSTIM
     Indication: Adrenal gland cancer
     Dosage: 250 ?G, 2X/WEEK UNDER THE SKIN
     Route: 058
  2. LEUKINE [Suspect]
     Active Substance: SARGRAMOSTIM
     Indication: Neutropenia
  3. LEUKINE [Suspect]
     Active Substance: SARGRAMOSTIM
     Indication: Ill-defined disorder
  4. STERILE WATER [Concomitant]
     Active Substance: WATER

REACTIONS (3)
  - Critical illness [Not Recovered/Not Resolved]
  - Hospitalisation [Recovered/Resolved]
  - Off label use [Unknown]
